FAERS Safety Report 19005152 (Version 7)
Quarter: 2023Q2

REPORT INFORMATION
  Report Type: Report from Study
  Country: BE (occurrence: BE)
  Receive Date: 20210312
  Receipt Date: 20230421
  Transmission Date: 20230721
  Serious: Yes (Death, Hospitalization)
  Sender: FDA-Public Use
  Company Number: BE-IPSEN GROUP, RESEARCH AND DEVELOPMENT-2021-03840

PATIENT

DRUGS (23)
  1. CABOZANTINIB [Suspect]
     Active Substance: CABOZANTINIB
     Indication: Renal cell carcinoma
     Dosage: 40 MG, QD
     Route: 048
     Dates: start: 20210208, end: 20210211
  2. LASIX [Concomitant]
     Active Substance: FUROSEMIDE
     Indication: Hyponatraemia
     Dates: start: 20210211, end: 20210211
  3. LASIX [Concomitant]
     Active Substance: FUROSEMIDE
     Dosage: 40 MG, QD
     Dates: start: 20210212, end: 20210212
  4. CHOLECALCIFEROL [Concomitant]
     Active Substance: CHOLECALCIFEROL
     Indication: Hypovitaminosis
     Dosage: ONE TIME PER WEEK
     Route: 048
     Dates: start: 20210212, end: 20210328
  5. AMOXICILLIN\CLAVULANIC ACID [Concomitant]
     Active Substance: AMOXICILLIN\CLAVULANIC ACID
     Indication: Dyspnoea
     Dosage: 4 TIMES PER DAY
     Dates: start: 20210212, end: 20210219
  6. CEFTRIAXONE SODIUM [Concomitant]
     Active Substance: CEFTRIAXONE SODIUM
     Indication: Dyspnoea
     Dates: start: 20210220, end: 20210301
  7. BUMETANIDE [Concomitant]
     Active Substance: BUMETANIDE
     Indication: Cardiac failure
     Route: 048
     Dates: start: 20210212, end: 20210223
  8. BUMETANIDE [Concomitant]
     Active Substance: BUMETANIDE
     Route: 048
     Dates: start: 20210224, end: 20210328
  9. ALDACTONE [Concomitant]
     Active Substance: SPIRONOLACTONE
     Indication: Cardiac failure
     Route: 048
     Dates: start: 20210213, end: 20210302
  10. ZESTRIL [Concomitant]
     Active Substance: LISINOPRIL
     Indication: Cardiac failure
     Route: 048
     Dates: start: 20210213, end: 20210223
  11. PRIVIGEN [Concomitant]
     Active Substance: HUMAN IMMUNOGLOBULIN G
     Indication: Leukoencephalopathy
     Route: 048
     Dates: start: 20210218, end: 20210222
  12. AMLODIPINE [Concomitant]
     Active Substance: AMLODIPINE BESYLATE
     Indication: Hypertension
     Dosage: TWICE PER DAY
     Route: 048
     Dates: start: 20210224, end: 20210328
  13. AMLODIPINE [Concomitant]
     Active Substance: AMLODIPINE BESYLATE
     Indication: Cardiac failure
  14. METHYLPREDNISOLONE [Concomitant]
     Active Substance: METHYLPREDNISOLONE
     Indication: Myelopathy
     Route: 048
     Dates: start: 20210220, end: 20210303
  15. METHYLPREDNISOLONE [Concomitant]
     Active Substance: METHYLPREDNISOLONE
     Dosage: 32 MG, QD
     Route: 048
     Dates: start: 20210304, end: 20210308
  16. ACTRAPID [Concomitant]
     Active Substance: INSULIN HUMAN
     Indication: Hyperglycaemia
     Dosage: OTHER PER HOUR
     Dates: start: 20210226, end: 20210301
  17. DIAZEPAM [Concomitant]
     Active Substance: DIAZEPAM
     Indication: Pain
     Dosage: TWICE PER DAY
     Route: 048
     Dates: start: 20210227, end: 20210304
  18. TRAMADOL [Concomitant]
     Active Substance: TRAMADOL
     Indication: Pain
     Dosage: 3 TIMES PER DAY
     Route: 048
     Dates: start: 20210227, end: 20210303
  19. OXYCODONE HYDROCHLORIDE [Concomitant]
     Active Substance: OXYCODONE HYDROCHLORIDE
     Indication: Pain
     Dosage: AS NEEDED
     Route: 048
     Dates: start: 20210303, end: 20210328
  20. METHYLPREDNISOLONE [Concomitant]
     Active Substance: METHYLPREDNISOLONE
     Indication: Myelopathy
     Route: 048
     Dates: start: 20210309, end: 20210313
  21. METHYLPREDNISOLONE [Concomitant]
     Active Substance: METHYLPREDNISOLONE
     Dosage: 8 MG, QD
     Route: 048
     Dates: start: 20210314, end: 20210318
  22. LANTUS [Concomitant]
     Active Substance: INSULIN GLARGINE
     Indication: Prophylaxis
     Dosage: ONCE
     Route: 058
     Dates: start: 20210317, end: 20210317
  23. INSULIN NOS [Concomitant]
     Active Substance: INSULIN NOS
     Indication: Prophylaxis
     Route: 058
     Dates: start: 20210318, end: 20210328

REACTIONS (5)
  - General physical health deterioration [Fatal]
  - Dyspnoea [Recovered/Resolved]
  - Spinal cord compression [Recovered/Resolved]
  - Condition aggravated [Not Recovered/Not Resolved]
  - Dysphonia [Not Recovered/Not Resolved]

NARRATIVE: CASE EVENT DATE: 20210208
